FAERS Safety Report 10565610 (Version 3)
Quarter: 2014Q4

REPORT INFORMATION
  Report Type: Spontaneous
  Country: LT (occurrence: LT)
  Receive Date: 20141105
  Receipt Date: 20141210
  Transmission Date: 20150529
  Serious: No
  Sender: FDA-Public Use
  Company Number: LT-GLAXOSMITHKLINE-LT2014GSK013516

PATIENT

DRUGS (1)
  1. FLIXOTIDE DISKUS [Suspect]
     Active Substance: FLUTICASONE PROPIONATE
     Indication: ASTHMA
     Dosage: 250 ?G, BID
     Route: 055
     Dates: start: 20141011, end: 20141016

REACTIONS (5)
  - Hypersensitivity [Unknown]
  - Overdose [Unknown]
  - Product quality issue [Unknown]
  - Device issue [Unknown]
  - Rhinorrhoea [Unknown]

NARRATIVE: CASE EVENT DATE: 20141011
